FAERS Safety Report 18136099 (Version 1)
Quarter: 2020Q3

REPORT INFORMATION
  Report Type: Other
  Country: CN (occurrence: CN)
  Receive Date: 20200811
  Receipt Date: 20200811
  Transmission Date: 20201103
  Serious: Yes (Other)
  Sender: FDA-Public Use
  Company Number: CN-GE HEALTHCARE LIFE SCIENCES-2020CSU003475

PATIENT

DRUGS (3)
  1. OMNIPAQUE [Suspect]
     Active Substance: IOHEXOL
     Indication: COMPUTERISED TOMOGRAM
     Dosage: 200 ML, SINGLE
     Route: 042
     Dates: start: 20200711, end: 20200711
  2. OMNIPAQUE [Suspect]
     Active Substance: IOHEXOL
     Indication: ARRHYTHMIA
  3. OMNIPAQUE [Suspect]
     Active Substance: IOHEXOL
     Indication: CORONARY ARTERY DISEASE

REACTIONS (4)
  - Amaurosis [Recovering/Resolving]
  - Nausea [Recovering/Resolving]
  - Dizziness [Recovering/Resolving]
  - Fatigue [Recovering/Resolving]

NARRATIVE: CASE EVENT DATE: 20200711
